FAERS Safety Report 20194913 (Version 1)
Quarter: 2021Q4

REPORT INFORMATION
  Report Type: Report from Study
  Country: AT (occurrence: AT)
  Receive Date: 20211216
  Receipt Date: 20211216
  Transmission Date: 20220303
  Serious: Yes (Death, Other)
  Sender: FDA-Public Use
  Company Number: AT-CELGENE-AUT-20211202756

PATIENT
  Age: 76 Year
  Sex: Female

DRUGS (1)
  1. POMALIDOMIDE [Suspect]
     Active Substance: POMALIDOMIDE
     Indication: Plasma cell myeloma
     Route: 048
     Dates: end: 20210210

REACTIONS (3)
  - Death [Fatal]
  - Acute kidney injury [Unknown]
  - Chest wall mass [Unknown]

NARRATIVE: CASE EVENT DATE: 20210412
